FAERS Safety Report 4433661-1 (Version None)
Quarter: 2004Q3

REPORT INFORMATION
  Report Type: 
  Country: None (occurrence: None)
  Receive Date: 20040826
  Receipt Date: 20040520
  Transmission Date: 20050211
  Serious: No
  Sender: FDA-Public Use
  Company Number: US-GLAXOSMITHKLINE-A0511616A

PATIENT
  Age: 68 Year
  Sex: Male
  Weight: 88.6 kg

DRUGS (2)
  1. AVODART [Suspect]
     Indication: BENIGN PROSTATIC HYPERPLASIA
     Dosage: .5MG PER DAY
     Route: 048
     Dates: start: 20040120
  2. HYTRIN [Concomitant]
     Dosage: 1MG PER DAY
     Route: 065

REACTIONS (4)
  - LIBIDO DECREASED [None]
  - NERVOUSNESS [None]
  - URINARY RETENTION [None]
  - URINE FLOW DECREASED [None]
